FAERS Safety Report 8844193 (Version 1)
Quarter: 2012Q4

REPORT INFORMATION
  Report Type: 
  Country: JP (occurrence: FR)
  Receive Date: 20121016
  Receipt Date: 20121016
  Transmission Date: 20130627
  Serious: Yes (Hospitalization)
  Sender: FDA-Public Use
  Company Number: JP-ASTRAZENECA-2001SE07140

PATIENT
  Sex: Female
  Weight: 64 kg

DRUGS (2)
  1. CANDESARTAN CILEXETIL [Suspect]
     Indication: SYSTOLIC HYPERTENSION
     Route: 048
     Dates: start: 20001227, end: 20010711
  2. ASPIRINE [Concomitant]
     Indication: PAIN

REACTIONS (5)
  - Tubulointerstitial nephritis [Not Recovered/Not Resolved]
  - Dyspnoea exertional [None]
  - Asthenia [None]
  - Normochromic normocytic anaemia [None]
  - Hypertriglyceridaemia [None]
